FAERS Safety Report 8286640-0 (Version None)
Quarter: 2012Q2

REPORT INFORMATION
  Report Type: 
  Country: None (occurrence: None)
  Receive Date: 20120411
  Receipt Date: 20120330
  Transmission Date: 20120825
  Serious: Yes (Life-Threatening, Congenital Anomaly, Other)
  Sender: FDA-Public Use
  Company Number: 2012P1010695

PATIENT
  Weight: 2.37 kg

DRUGS (1)
  1. FAMOTIDINE [Suspect]
     Indication: CAESAREAN SECTION
     Dosage: ;TRPL
     Route: 064

REACTIONS (4)
  - APGAR SCORE ABNORMAL [None]
  - CAESAREAN SECTION [None]
  - MATERNAL DRUGS AFFECTING FOETUS [None]
  - PERIVENTRICULAR LEUKOMALACIA [None]
